FAERS Safety Report 20340483 (Version 2)
Quarter: 2022Q2

REPORT INFORMATION
  Report Type: Spontaneous
  Country: DE (occurrence: DE)
  Receive Date: 20220117
  Receipt Date: 20220512
  Transmission Date: 20220720
  Serious: Yes (Other)
  Sender: FDA-Public Use
  Company Number: DE-NOVARTISPH-NVSC2022DE007852

PATIENT
  Age: 49 Year
  Sex: Male

DRUGS (11)
  1. PACLITAXEL [Suspect]
     Active Substance: PACLITAXEL
     Indication: Non-small cell lung cancer metastatic
     Dosage: 1 CYCLICAL, QD
     Route: 065
     Dates: start: 202104
  2. CARBOPLATIN [Suspect]
     Active Substance: CARBOPLATIN
     Indication: Non-small cell lung cancer metastatic
     Dosage: 1 CYCLICAL, QD
     Route: 065
     Dates: start: 202104
  3. OPDIVO [Suspect]
     Active Substance: NIVOLUMAB
     Indication: Non-small cell lung cancer metastatic
     Dosage: 360 MG, Q2W
     Route: 065
     Dates: start: 202104
  4. OPDIVO [Suspect]
     Active Substance: NIVOLUMAB
     Dosage: 360 MILLIGRAM, Q2WK
     Route: 065
     Dates: start: 20210423
  5. OPDIVO [Suspect]
     Active Substance: NIVOLUMAB
     Dosage: MAINTENANCE ON D1, D22 AND D43
     Route: 065
     Dates: start: 20210604
  6. OPDIVO [Suspect]
     Active Substance: NIVOLUMAB
     Dosage: UNK
     Route: 065
     Dates: start: 20211111, end: 20220113
  7. OPDIVO [Suspect]
     Active Substance: NIVOLUMAB
     Dosage: MONOTHERAPY
     Route: 065
     Dates: start: 20220214
  8. YERVOY [Suspect]
     Active Substance: IPILIMUMAB
     Indication: Non-small cell lung cancer metastatic
     Dosage: 1 MG/KG (Q6WK)
     Route: 065
     Dates: start: 202104
  9. YERVOY [Suspect]
     Active Substance: IPILIMUMAB
     Dosage: 1 MILLIGRAM/KILOGRAM, Q6WK
     Route: 065
     Dates: start: 20210423
  10. YERVOY [Suspect]
     Active Substance: IPILIMUMAB
     Dosage: MAINTENANCE ON D1, D22 AND D43
     Route: 065
     Dates: start: 20210604
  11. YERVOY [Suspect]
     Active Substance: IPILIMUMAB
     Dosage: UNK
     Route: 065
     Dates: start: 20211111, end: 20220113

REACTIONS (4)
  - Adrenal insufficiency [Unknown]
  - Hemianopia [Recovering/Resolving]
  - Seizure [Recovered/Resolved]
  - Intentional product use issue [Unknown]

NARRATIVE: CASE EVENT DATE: 20210423
